FAERS Safety Report 7462136-0 (Version None)
Quarter: 2011Q2

REPORT INFORMATION
  Report Type: 
  Country: None (occurrence: None)
  Receive Date: 20110506
  Receipt Date: 20110428
  Transmission Date: 20111010
  Serious: Yes (Hospitalization)
  Sender: FDA-Public Use
  Company Number: JP-SANOFI-AVENTIS-2011SA015511

PATIENT
  Age: 68 Year
  Sex: Female
  Weight: 57.9 kg

DRUGS (14)
  1. HUMALOG [Concomitant]
     Indication: TYPE 2 DIABETES MELLITUS
     Dosage: DOSE:300 UNIT(S)
     Route: 058
     Dates: start: 20070709
  2. CALCIUM POLYSTYRENE SULFONATE [Concomitant]
     Indication: RENAL FAILURE CHRONIC
     Route: 048
     Dates: start: 20100406, end: 20110314
  3. ITAVASTATIN [Concomitant]
     Route: 048
     Dates: start: 20070625
  4. TORSEMIDE [Concomitant]
     Indication: HYPERTENSION
     Route: 048
     Dates: start: 20110301
  5. ANPLAG [Concomitant]
     Indication: THROMBOSIS PROPHYLAXIS
     Route: 048
     Dates: start: 20091119
  6. DRONEDARONE HCL [Suspect]
     Route: 048
     Dates: start: 20110310, end: 20110314
  7. FUROSEMIDE [Concomitant]
     Indication: HYPERTENSION
     Route: 048
     Dates: start: 20091119, end: 20110309
  8. TELMISARTAN [Concomitant]
     Indication: HYPERTENSION
     Route: 048
     Dates: start: 20101005
  9. KREMEZIN [Concomitant]
     Indication: RENAL FAILURE CHRONIC
     Route: 048
     Dates: start: 20101207
  10. OMEPRAL [Concomitant]
     Indication: REFLUX OESOPHAGITIS
     Route: 048
     Dates: start: 20090805, end: 20110314
  11. MIGLITOL [Concomitant]
     Indication: TYPE 2 DIABETES MELLITUS
     Route: 048
     Dates: end: 20110314
  12. ATELEC [Concomitant]
     Indication: HYPERTENSION
     Route: 048
     Dates: start: 20101102, end: 20110314
  13. HUMALOG [Concomitant]
     Indication: TYPE 2 DIABETES MELLITUS
     Dosage: DOSE:300 UNIT(S)
     Route: 058
     Dates: start: 20100713
  14. MAINTATE [Concomitant]
     Indication: HYPERTENSION
     Route: 048
     Dates: start: 20101102

REACTIONS (3)
  - RENAL FAILURE ACUTE [None]
  - BLOOD PRESSURE DECREASED [None]
  - MALAISE [None]
